FAERS Safety Report 8198891-4 (Version None)
Quarter: 2012Q1

REPORT INFORMATION
  Report Type: 
  Country: None (occurrence: None)
  Receive Date: 20120309
  Receipt Date: 20120222
  Transmission Date: 20120608
  Serious: No
  Sender: FDA-Public Use
  Company Number: US-AMGEN-USASP2012008556

PATIENT
  Age: 49 Year
  Sex: Female

DRUGS (7)
  1. PREDNISONE TAB [Concomitant]
  2. PREDNISONE TAB [Concomitant]
  3. VITAMIN D [Concomitant]
     Dosage: 2000 IU, QD
  4. CALCIUM [Concomitant]
     Dosage: 1200 MG, QD
  5. PREDNISONE TAB [Concomitant]
     Dosage: 40 MG, QD
  6. PROLIA [Suspect]
     Dosage: 60 MG, Q6MO
     Route: 058
     Dates: start: 20120203
  7. PROLIA [Suspect]
     Indication: OSTEOPOROSIS POSTMENOPAUSAL
     Dosage: 60 MG, Q6MO
     Route: 058
     Dates: start: 20110901

REACTIONS (3)
  - GAIT DISTURBANCE [None]
  - HEADACHE [None]
  - ARTHRALGIA [None]
